FAERS Safety Report 14505188 (Version 1)
Quarter: 2018Q1

REPORT INFORMATION
  Report Type: Spontaneous
  Country: US (occurrence: US)
  Receive Date: 20180208
  Receipt Date: 20180208
  Transmission Date: 20180509
  Serious: Yes (Hospitalization)
  Sender: FDA-Public Use
  Company Number: US-PFIZER INC-2018052953

PATIENT
  Age: 75 Year
  Sex: Female

DRUGS (9)
  1. MECLIZINE [Concomitant]
     Active Substance: MECLIZINE HYDROCHLORIDE
     Dosage: 25 MG, UNK
  2. ALENDRONATE [Concomitant]
     Active Substance: ALENDRONATE SODIUM
     Dosage: 70 MG, UNK
  3. VOLTAREN [Concomitant]
     Active Substance: DICLOFENAC SODIUM
     Dosage: UNK
  4. PREDNISONE. [Concomitant]
     Active Substance: PREDNISONE
     Dosage: 5 MG, UNK
  5. TRAMADOL HCL [Concomitant]
     Active Substance: TRAMADOL HYDROCHLORIDE
     Dosage: 50 MG, UNK
  6. XELJANZ XR [Suspect]
     Active Substance: TOFACITINIB CITRATE
     Indication: OSTEOPOROSIS
     Dosage: 11 MG, 1X/DAY
     Route: 048
     Dates: start: 20180102
  7. MUPIROCIN. [Concomitant]
     Active Substance: MUPIROCIN
     Dosage: UNK
  8. NAPROXEN. [Concomitant]
     Active Substance: NAPROXEN
     Dosage: 375 MG, UNK
  9. OMEPRAZOLE. [Concomitant]
     Active Substance: OMEPRAZOLE
     Dosage: 20 MG, UNK

REACTIONS (4)
  - Product use in unapproved indication [Unknown]
  - Fall [Not Recovered/Not Resolved]
  - Arthralgia [Not Recovered/Not Resolved]
  - Balance disorder [Not Recovered/Not Resolved]
